FAERS Safety Report 16360789 (Version 1)
Quarter: 2019Q2

REPORT INFORMATION
  Report Type: Report from Study
  Country: US (occurrence: US)
  Receive Date: 20190528
  Receipt Date: 20190528
  Transmission Date: 20190711
  Serious: Yes (Other)
  Sender: FDA-Public Use
  Company Number: US-AUROBINDO-AUR-APL-2019-029114

PATIENT

DRUGS (3)
  1. CARBOPLATIN. [Suspect]
     Active Substance: CARBOPLATIN
     Indication: NEUROBLASTOMA
     Dosage: UNK
     Route: 065
  2. ETOPOSIDE. [Suspect]
     Active Substance: ETOPOSIDE
     Indication: NEUROBLASTOMA
     Dosage: UNK
     Route: 065
  3. MELPHALAN. [Suspect]
     Active Substance: MELPHALAN
     Indication: NEUROBLASTOMA
     Dosage: UNK
     Route: 065

REACTIONS (8)
  - Thrombotic microangiopathy [Unknown]
  - Proteinuria [Unknown]
  - Anaemia [Unknown]
  - Schistocytosis [Unknown]
  - Thrombocytopenia [Unknown]
  - Hypertension [Unknown]
  - Venoocclusive disease [Unknown]
  - Blood lactate dehydrogenase increased [Unknown]
